FAERS Safety Report 12842638 (Version 1)
Quarter: 2016Q4

REPORT INFORMATION
  Report Type: Spontaneous
  Country: US (occurrence: US)
  Receive Date: 20161012
  Receipt Date: 20161012
  Transmission Date: 20170207
  Serious: No
  Sender: FDA-Public Use
  Company Number: None

PATIENT
  Age: 50 Year
  Sex: Male
  Weight: 71.5 kg

DRUGS (1)
  1. BENEFIX [Suspect]
     Active Substance: COAGULATION FACTOR IX RECOMBINANT HUMAN\ISOPROPYL ALCOHOL
     Indication: FACTOR IX DEFICIENCY
     Dosage: 6600 UNITS PM IV
     Route: 042
     Dates: start: 20161001

REACTIONS (4)
  - Infusion related reaction [None]
  - Headache [None]
  - Hyperhidrosis [None]
  - Pruritus generalised [None]

NARRATIVE: CASE EVENT DATE: 20161001
